FAERS Safety Report 18998951 (Version 3)
Quarter: 2022Q1

REPORT INFORMATION
  Report Type: Other
  Country: CA (occurrence: CA)
  Receive Date: 20210312
  Receipt Date: 20220203
  Transmission Date: 20220423
  Serious: Yes (Other)
  Sender: FDA-Public Use
  Company Number: CA-CELLTRION INC.-2021CA002996

PATIENT

DRUGS (24)
  1. RITUXIMAB [Suspect]
     Active Substance: RITUXIMAB
     Indication: Susac^s syndrome
     Dosage: 1000 MG, 1 EVERY 15 DAYS
     Route: 042
  2. RITUXIMAB [Suspect]
     Active Substance: RITUXIMAB
     Dosage: 1000 MG, 1 EVERY 15 DAYS
     Route: 042
  3. RITUXIMAB [Suspect]
     Active Substance: RITUXIMAB
     Dosage: 500 MG
     Route: 042
  4. BENADRYL [Concomitant]
     Active Substance: DIPHENHYDRAMINE HYDROCHLORIDE
     Indication: Premedication
     Dosage: 50 MG
     Route: 048
  5. CALCIUM;MAGNESIUM [Concomitant]
  6. CLOBETASOL PROPIONATE [Concomitant]
     Active Substance: CLOBETASOL PROPIONATE
  7. DESONIDE [Concomitant]
     Active Substance: DESONIDE
  8. ERGOCALCIFEROL [Concomitant]
     Active Substance: ERGOCALCIFEROL
  9. ESCITALOPRAM [Concomitant]
     Active Substance: ESCITALOPRAM OXALATE
  10. HUMAN IMMUNOGLOBULIN G [Concomitant]
     Active Substance: HUMAN IMMUNOGLOBULIN G
  11. IRON [Concomitant]
     Active Substance: IRON
  12. LORAZEPAM [Concomitant]
     Active Substance: LORAZEPAM
     Route: 065
  13. METHYLPREDNISOLONE SODIUM SUCCINATE [Concomitant]
     Active Substance: METHYLPREDNISOLONE SODIUM SUCCINATE
     Indication: Premedication
     Dosage: 100 MG
     Route: 042
  14. MODAFINIL [Concomitant]
     Active Substance: MODAFINIL
     Dosage: 100 MG
     Route: 065
  15. MYCOPHENOLATE MOFETIL [Concomitant]
     Active Substance: MYCOPHENOLATE MOFETIL
  16. NORTRIPTYLINE HYDROCHLORIDE [Concomitant]
     Active Substance: NORTRIPTYLINE HYDROCHLORIDE
     Dosage: 10 MG, 1 EVERY 1 DAY
     Route: 065
  17. DOCONEXENT\ICOSAPENT [Concomitant]
     Active Substance: DOCONEXENT\ICOSAPENT
  18. ONDANSETRON [Concomitant]
     Active Substance: ONDANSETRON
  19. PREDNISONE [Concomitant]
     Active Substance: PREDNISONE
     Dosage: UNK
  20. SULFATRIM [Concomitant]
     Active Substance: SULFAMETHOXAZOLE\TRIMETHOPRIM
     Dosage: 3 EVERY 1 WEEK
     Route: 065
  21. TYLENOL [Concomitant]
     Active Substance: ACETAMINOPHEN
     Indication: Premedication
     Dosage: 650 MG
     Route: 048
  22. TYLENOL WITH CODEINE [Concomitant]
     Active Substance: ACETAMINOPHEN\CODEINE PHOSPHATE
  23. VITAMIN C [Concomitant]
     Active Substance: ASCORBIC ACID
  24. ZOPICLONE [Concomitant]
     Active Substance: ZOPICLONE
     Dosage: 7.5 MG, 1 EVERY 1 DAY
     Route: 065

REACTIONS (11)
  - Arteritis [Not Recovered/Not Resolved]
  - Migraine with aura [Not Recovered/Not Resolved]
  - Retinal artery occlusion [Not Recovered/Not Resolved]
  - Susac^s syndrome [Not Recovered/Not Resolved]
  - Vertigo [Not Recovered/Not Resolved]
  - Vision blurred [Not Recovered/Not Resolved]
  - Dizziness [Not Recovered/Not Resolved]
  - Influenza like illness [Not Recovered/Not Resolved]
  - Nausea [Not Recovered/Not Resolved]
  - Rash [Not Recovered/Not Resolved]
  - Off label use [Unknown]
